FAERS Safety Report 21254448 (Version 1)
Quarter: 2022Q3

REPORT INFORMATION
  Report Type: Spontaneous
  Country: US (occurrence: US)
  Receive Date: 20220825
  Receipt Date: 20220825
  Transmission Date: 20221027
  Serious: No
  Sender: FDA-Public Use
  Company Number: US-MAYNE PHARMA-2022MYN001068

PATIENT
  Sex: Female

DRUGS (1)
  1. FABIOR [Suspect]
     Active Substance: TAZAROTENE
     Indication: Product used for unknown indication
     Dosage: 0.1%
     Route: 061

REACTIONS (4)
  - Ocular hyperaemia [Unknown]
  - Erythema of eyelid [Unknown]
  - Eye swelling [Unknown]
  - Eyelid oedema [Unknown]
